FAERS Safety Report 23460165 (Version 1)
Quarter: 2024Q1

REPORT INFORMATION
  Report Type: Spontaneous
  Country: US (occurrence: US)
  Receive Date: 20240131
  Receipt Date: 20240131
  Transmission Date: 20240410
  Serious: Yes (Other)
  Sender: FDA-Public Use
  Company Number: US-STRIDES ARCOLAB LIMITED-2023SP003725

PATIENT
  Sex: Female

DRUGS (2)
  1. CABERGOLINE [Suspect]
     Active Substance: CABERGOLINE
     Indication: Hyperprolactinaemia
     Dosage: UNK
     Route: 065
  2. LEVOTHYROXINE [Concomitant]
     Active Substance: LEVOTHYROXINE\LEVOTHYROXINE SODIUM
     Indication: Primary hypothyroidism
     Dosage: UNK
     Route: 065

REACTIONS (1)
  - Drug ineffective [Unknown]
